FAERS Safety Report 9338534 (Version 1)
Quarter: 2013Q2

REPORT INFORMATION
  Report Type: Spontaneous
  Country: US (occurrence: None)
  Receive Date: 20130605
  Receipt Date: 20130605
  Transmission Date: 20140414
  Serious: No
  Sender: FDA-Public Use
  Company Number: None

PATIENT
  Age: 25 Year
  Sex: Male

DRUGS (2)
  1. OXCARBAZEPINE [Suspect]
     Indication: AFFECTIVE DISORDER
  2. OXCARBAZEPINE [Suspect]
     Indication: ANGER

REACTIONS (2)
  - Blood sodium decreased [None]
  - Blood glucose decreased [None]
